FAERS Safety Report 21710618 (Version 2)
Quarter: 2022Q4

REPORT INFORMATION
  Report Type: Spontaneous
  Country: JP (occurrence: JP)
  Receive Date: 20221212
  Receipt Date: 20221222
  Transmission Date: 20230113
  Serious: Yes (Other)
  Sender: FDA-Public Use
  Company Number: JP-MTPC-MTPC2022-0033380

PATIENT
  Age: 56 Year
  Sex: Female

DRUGS (1)
  1. EDARAVONE [Suspect]
     Active Substance: EDARAVONE
     Indication: Amyotrophic lateral sclerosis
     Dosage: 60 MILLIGRAM, QD
     Route: 041
     Dates: start: 20151102, end: 201805

REACTIONS (1)
  - Mechanical ventilation [Unknown]

NARRATIVE: CASE EVENT DATE: 20180501
